FAERS Safety Report 23311233 (Version 1)
Quarter: 2023Q4

REPORT INFORMATION
  Report Type: Spontaneous
  Country: FR (occurrence: FR)
  Receive Date: 20231219
  Receipt Date: 20231219
  Transmission Date: 20240110
  Serious: Yes (Other)
  Sender: FDA-Public Use
  Company Number: None

PATIENT
  Age: 70 Year
  Weight: 71 kg

DRUGS (6)
  1. METHOTREXATE (METHOTREXATE SODIUM) [Suspect]
     Active Substance: METHOTREXATE SODIUM
     Indication: Ocular lymphoma
     Dosage: C2J1,10 PERCENT (5 G/50 ML),
     Route: 042
     Dates: start: 20231025, end: 20231025
  2. METHOTREXATE (METHOTREXATE SODIUM) [Suspect]
     Active Substance: METHOTREXATE SODIUM
     Indication: Ocular lymphoma
     Dosage: C1J1,10 PERCENT (5 G/50 ML),
     Route: 042
     Dates: start: 20230704, end: 20230704
  3. METHOTREXATE (METHOTREXATE SODIUM) [Suspect]
     Active Substance: METHOTREXATE SODIUM
     Indication: Ocular lymphoma
     Dosage: C1J5,10 PERCENT (5 G/50 ML),
     Route: 042
     Dates: start: 20230721, end: 20230721
  4. NERISONE [Concomitant]
     Active Substance: DIFLUCORTOLONE VALERATE
     Indication: Psoriasis
     Route: 003
  5. CHOLECALCIFEROL [Concomitant]
     Active Substance: CHOLECALCIFEROL
     Indication: Vitamin supplementation
     Dosage: IN AMPOULE
     Route: 048
  6. LEVOTHYROXINE [Concomitant]
     Active Substance: LEVOTHYROXINE
     Indication: Hypothyroidism
     Dosage: ALTERNATING EVERY OTHER DAY 100 ?G AND 75 ?G
     Route: 048

REACTIONS (1)
  - Macular oedema [Recovering/Resolving]

NARRATIVE: CASE EVENT DATE: 20230801
